FAERS Safety Report 9225178 (Version 2)
Quarter: 2013Q2

REPORT INFORMATION
  Report Type: Spontaneous
  Country: DE (occurrence: DE)
  Receive Date: 20130411
  Receipt Date: 20130517
  Transmission Date: 20140414
  Serious: Yes (Other)
  Sender: FDA-Public Use
  Company Number: DE-SANOFI-AVENTIS-2013SA037447

PATIENT
  Age: 58 Year
  Sex: Male

DRUGS (4)
  1. CLEXANE [Suspect]
     Indication: PROPHYLAXIS
     Route: 058
     Dates: start: 20130206, end: 20130225
  2. ALLOPURINOL [Concomitant]
  3. VOLTAREN [Concomitant]
  4. VALSARTAN [Concomitant]

REACTIONS (1)
  - Gout [Unknown]
